FAERS Safety Report 25846914 (Version 1)
Quarter: 2025Q3

REPORT INFORMATION
  Report Type: Report from Study
  Country: US (occurrence: US)
  Receive Date: 20250925
  Receipt Date: 20250925
  Transmission Date: 20251020
  Serious: Yes (Other)
  Sender: ABBVIE
  Company Number: US-ABBVIE-6474936

PATIENT
  Sex: Female

DRUGS (1)
  1. BOTOX [Suspect]
     Active Substance: ONABOTULINUMTOXINA
     Indication: Facial spasm
     Route: 030
     Dates: start: 202311, end: 202311

REACTIONS (3)
  - Surgery [Unknown]
  - Facial paralysis [Unknown]
  - Drug effect less than expected [Unknown]
